FAERS Safety Report 4604328-1 (Version None)
Quarter: 2005Q1

REPORT INFORMATION
  Report Type: 
  Country: None (occurrence: None)
  Receive Date: 20050308
  Receipt Date: 20050222
  Transmission Date: 20050727
  Serious: Yes (Hospitalization)
  Sender: FDA-Public Use
  Company Number: 2005035080

PATIENT
  Sex: Male

DRUGS (7)
  1. CAMPTOSAR [Suspect]
     Indication: EWING'S SARCOMA RECURRENT
     Dosage: 16 MG (CYCLIC), INTRAVENOUS
     Route: 042
     Dates: start: 20020130, end: 20020824
  2. METHADONE HYDROCHLORIDE (METHADONE HYDROCHLORIDE) [Suspect]
     Indication: PAIN
     Dosage: 7.5 MG (3 IN 1 D), ORAL
     Route: 048
  3. TEMOZOLOMIDE (TEMOZOLOMIDE) [Suspect]
     Indication: EWING'S SARCOMA RECURRENT
     Dosage: 160 MG (CYCLIC), ORAL
     Route: 048
     Dates: start: 20020130, end: 20020824
  4. DRONABINOL (DRONABINOL) [Suspect]
     Indication: NAUSEA
     Dosage: 5 MG (2 IN 1 D), ORAL
     Route: 048
  5. DRONABINOL (DRONABINOL) [Suspect]
     Indication: VOMITING
     Dosage: 5 MG (2 IN 1 D), ORAL
     Route: 048
  6. GABAPENTIN [Concomitant]
  7. MODAFINIL [Concomitant]

REACTIONS (4)
  - ANAL FISSURE [None]
  - CONSTIPATION [None]
  - HAEMORRHOIDS [None]
  - RECTAL HAEMORRHAGE [None]
